FAERS Safety Report 9898495 (Version 2)
Quarter: 2014Q1

REPORT INFORMATION
  Report Type: Spontaneous
  Country: US (occurrence: US)
  Receive Date: 20140214
  Receipt Date: 20140225
  Transmission Date: 20141002
  Serious: Yes (Hospitalization, Other)
  Sender: FDA-Public Use
  Company Number: US-BAXTER-2014BAX007034

PATIENT
  Sex: Male

DRUGS (3)
  1. DIANEAL LOW CALCIUM [Suspect]
     Indication: RENAL FAILURE CHRONIC
     Route: 033
     Dates: start: 201001
  2. DIANEAL LOW CALCIUM [Suspect]
     Indication: RENAL FAILURE CHRONIC
     Route: 033
     Dates: start: 201001
  3. EXTRANEAL [Suspect]
     Indication: RENAL FAILURE CHRONIC
     Dosage: LAST FILL
     Route: 033
     Dates: start: 201001

REACTIONS (2)
  - Pneumonia [Recovered/Resolved]
  - H1N1 influenza [Unknown]
